FAERS Safety Report 21366656 (Version 1)
Quarter: 2022Q3

REPORT INFORMATION
  Report Type: Other
  Country: AU (occurrence: AU)
  Receive Date: 20220923
  Receipt Date: 20220923
  Transmission Date: 20221026
  Serious: No
  Sender: FDA-Public Use
  Company Number: AU-TOLMAR, INC.-22AU036637

PATIENT
  Sex: Male

DRUGS (1)
  1. ELIGARD [Suspect]
     Active Substance: LEUPROLIDE ACETATE
     Indication: Prostate cancer
     Dosage: 22.5 MILLIGRAM, Q 3 MONTH

REACTIONS (7)
  - Hypotonia [Unknown]
  - Asthenia [Unknown]
  - Mood swings [Unknown]
  - Exercise tolerance decreased [Unknown]
  - Fatigue [Unknown]
  - Loss of libido [Unknown]
  - Arthralgia [Unknown]
